FAERS Safety Report 7970727-3 (Version None)
Quarter: 2011Q4

REPORT INFORMATION
  Report Type: 
  Country: None (occurrence: None)
  Receive Date: 20111212
  Receipt Date: 20111128
  Transmission Date: 20120403
  Serious: Yes (Other)
  Sender: FDA-Public Use
  Company Number: PHHY2011US50051

PATIENT
  Sex: Female

DRUGS (2)
  1. EXJADE [Suspect]
     Dosage: 1000 MG, BID
     Route: 048
  2. EXJADE [Suspect]
     Dosage: 1000 MG, BID
     Route: 048

REACTIONS (8)
  - INFLUENZA [None]
  - LOWER RESPIRATORY TRACT INFECTION [None]
  - MALAISE [None]
  - SINUSITIS [None]
  - BLOOD GLUCOSE INCREASED [None]
  - COUGH [None]
  - NASOPHARYNGITIS [None]
  - DIARRHOEA [None]
